FAERS Safety Report 14482206 (Version 1)
Quarter: 2018Q1

REPORT INFORMATION
  Report Type: Spontaneous
  Country: US (occurrence: US)
  Receive Date: 20180202
  Receipt Date: 20180202
  Transmission Date: 20180509
  Serious: Yes (Hospitalization)
  Sender: FDA-Public Use
  Company Number: None

PATIENT
  Age: 18 Year
  Sex: Female
  Weight: 77 kg

DRUGS (12)
  1. METHOTREXATE. [Suspect]
     Active Substance: METHOTREXATE
     Dates: end: 20180114
  2. MEROPENUM [Concomitant]
     Active Substance: MEROPENEM
  3. MICAFUNGIN [Concomitant]
     Active Substance: MICAFUNGIN
  4. VINCRISTINE SULFATE. [Suspect]
     Active Substance: VINCRISTINE SULFATE
     Dates: end: 20180114
  5. TOTAL PARENTERAL NUTRITION (TPN) [Concomitant]
  6. DAUNORUBICIN [Suspect]
     Active Substance: DAUNORUBICIN
     Dates: end: 20180114
  7. VANCOMYCIN [Concomitant]
     Active Substance: VANCOMYCIN
  8. PREDNISONE. [Suspect]
     Active Substance: PREDNISONE
     Dates: end: 20180118
  9. ONCASPAR [Suspect]
     Active Substance: PEGASPARGASE
     Dates: end: 20180110
  10. LINEZOLID. [Concomitant]
     Active Substance: LINEZOLID
  11. CYTARABINE. [Suspect]
     Active Substance: CYTARABINE
     Dates: end: 20180107
  12. POSACONAZOLE [Concomitant]
     Active Substance: POSACONAZOLE

REACTIONS (11)
  - Candida test positive [None]
  - Renal failure [None]
  - Respiratory distress [None]
  - Hepatic failure [None]
  - Hypotension [None]
  - Respiratory failure [None]
  - Blood creatinine increased [None]
  - Thrombocytopenia [None]
  - Staphylococcal infection [None]
  - Anaemia [None]
  - Laryngeal necrosis [None]

NARRATIVE: CASE EVENT DATE: 20180117
